FAERS Safety Report 16528522 (Version 1)
Quarter: 2019Q3

REPORT INFORMATION
  Report Type: Spontaneous
  Country: CN (occurrence: CN)
  Receive Date: 20190703
  Receipt Date: 20190703
  Transmission Date: 20191004
  Serious: Yes (Other)
  Sender: FDA-Public Use
  Company Number: CN-ASTRAZENECA-2019SE91726

PATIENT
  Sex: Female
  Weight: 70 kg

DRUGS (3)
  1. BICYCLOL [Concomitant]
     Active Substance: BICYCLOL
     Indication: PROPHYLAXIS
     Dosage: 2 TABLETS, BID
     Route: 048
     Dates: start: 2018
  2. IRESSA [Suspect]
     Active Substance: GEFITINIB
     Indication: NON-SMALL CELL LUNG CANCER
     Dosage: ONE TABLET, DAILY
     Route: 048
     Dates: start: 201801, end: 20190612
  3. TAGRISSO [Concomitant]
     Active Substance: OSIMERTINIB

REACTIONS (3)
  - Malignant neoplasm progression [Unknown]
  - Transaminases decreased [Unknown]
  - Drug resistance [Unknown]
